FAERS Safety Report 7955793-3 (Version None)
Quarter: 2011Q4

REPORT INFORMATION
  Report Type: 
  Country: None (occurrence: None)
  Receive Date: 20111205
  Receipt Date: 20111123
  Transmission Date: 20120403
  Serious: Yes (Hospitalization, Other)
  Sender: FDA-Public Use
  Company Number: US-BIOGENIDEC-2011BI029642

PATIENT
  Age: 57 Year
  Sex: Female

DRUGS (2)
  1. TYSABRI [Suspect]
     Route: 042
     Dates: start: 20110216
  2. TYSABRI [Suspect]
     Indication: MULTIPLE SCLEROSIS
     Route: 042
     Dates: start: 20081218, end: 20100720

REACTIONS (6)
  - IMPULSIVE BEHAVIOUR [None]
  - ASTHENIA [None]
  - DEPRESSION [None]
  - MULTIPLE SCLEROSIS [None]
  - SUICIDAL IDEATION [None]
  - PSYCHOTIC DISORDER [None]
